FAERS Safety Report 5298915-8 (Version None)
Quarter: 2007Q2

REPORT INFORMATION
  Report Type: 
  Country: None (occurrence: None)
  Receive Date: 20070412
  Receipt Date: 20070412
  Transmission Date: 20071010
  Serious: Yes (Other)
  Sender: FDA-Public Use
  Company Number: None

PATIENT
  Sex: Female
  Weight: 79.8331 kg

DRUGS (1)
  1. ZONISAMIDE [Suspect]
     Indication: WEIGHT INCREASED
     Dosage: 25MG BEDTIME PO
     Route: 048
     Dates: start: 20070405, end: 20070407

REACTIONS (2)
  - INSOMNIA [None]
  - PRURITUS GENERALISED [None]
